FAERS Safety Report 6173976-2 (Version None)
Quarter: 2009Q2

REPORT INFORMATION
  Report Type: 
  Country: None (occurrence: None)
  Receive Date: 20090430
  Receipt Date: 20090420
  Transmission Date: 20091009
  Serious: Yes (Other)
  Sender: FDA-Public Use
  Company Number: CA-WYE-H09093009

PATIENT
  Age: 73 Year
  Sex: Male

DRUGS (6)
  1. AMIODARONE [Suspect]
     Indication: CARDIOVASCULAR DISORDER
     Dosage: DOSE AND FREQUENCY NOT SPECIFIED
     Route: 065
  2. FERROUS GLUCONATE [Suspect]
     Indication: IRON DEFICIENCY ANAEMIA
     Dosage: DOSE AND FREQUENCY NOT SPECIFIED
     Route: 065
  3. LEVOTHYROXINE SODIUM [Suspect]
     Indication: CARDIOVASCULAR DISORDER
     Dosage: DOSE AND FREQUENCY NOT SPECIFIED
     Route: 065
  4. WARFARIN [Suspect]
     Indication: CARDIOVASCULAR DISORDER
     Dosage: DOSE AND FREQUENCY NOT SPECIFIED
     Route: 065
  5. ASPIRIN [Suspect]
     Indication: CARDIOVASCULAR DISORDER
     Dosage: DOSE AND FREQUENCY NOT SPECIFIED
     Route: 065
  6. LASIX [Suspect]
     Indication: CARDIOVASCULAR DISORDER
     Dosage: DOSE AND FREQUENCY NOT SPECIFIED
     Route: 065

REACTIONS (2)
  - COLITIS [None]
  - VASCULITIS GASTROINTESTINAL [None]
